FAERS Safety Report 6363945-1 (Version None)
Quarter: 2009Q3

REPORT INFORMATION
  Report Type: 
  Country: None (occurrence: None)
  Receive Date: 20090919
  Receipt Date: 20090709
  Transmission Date: 20100115
  Serious: No
  Sender: FDA-Public Use
  Company Number: US-ABBOTT-09P-163-0584811-00

PATIENT
  Sex: Female
  Weight: 61.29 kg

DRUGS (4)
  1. HUMIRA [Suspect]
     Indication: UVEITIS
     Route: 058
     Dates: start: 20081101
  2. HUMIRA [Suspect]
     Indication: EYE INFLAMMATION
  3. HUMIRA [Suspect]
     Indication: RHEUMATOID ARTHRITIS
  4. DERMAMATCH [Suspect]
     Indication: ALOPECIA
     Route: 061

REACTIONS (4)
  - ERYTHEMA [None]
  - HYPERAESTHESIA [None]
  - JOINT SWELLING [None]
  - PAIN OF SKIN [None]
